FAERS Safety Report 4562902-5 (Version None)
Quarter: 2005Q1

REPORT INFORMATION
  Report Type: 
  Country: None (occurrence: None)
  Receive Date: 20050121
  Receipt Date: 20050114
  Transmission Date: 20050727
  Serious: Yes (Hospitalization)
  Sender: FDA-Public Use
  Company Number: 200510001BFR

PATIENT
  Age: 71 Year
  Sex: Male
  Weight: 100 kg

DRUGS (6)
  1. GLUCOR (ACARBOSE) [Suspect]
     Indication: DIABETES MELLITUS
     Dosage: 100 MG, TOTAL DAILY, ORAL
     Route: 048
     Dates: start: 19900101
  2. THALIDOMIDE [Suspect]
     Indication: MULTIPLE MYELOMA
     Dosage: 100 MG, TOTAL DAILY, ORAL
     Route: 048
     Dates: start: 20040729, end: 20041009
  3. GLUCOPHAGE [Suspect]
     Indication: DIABETES MELLITUS
     Dosage: 500 MG, QD, ORAL
     Route: 048
     Dates: start: 19900101
  4. GLYBURIDE [Suspect]
     Indication: DIABETES MELLITUS
     Dosage: 5 MG, TOTAL DAILY, ORAL
     Route: 048
     Dates: start: 19900101
  5. CORDARONE [Suspect]
     Indication: ARRHYTHMIA
     Dosage: 200 MG, TOTAL DAILY, ORAL
     Route: 048
  6. PAROXETINE HCL [Suspect]
     Indication: DEPRESSION
     Dosage: 20 MG, TOTAL DAILY, ORAL
     Route: 048

REACTIONS (1)
  - FEBRILE BONE MARROW APLASIA [None]
